FAERS Safety Report 6739229-6 (Version None)
Quarter: 2010Q2

REPORT INFORMATION
  Report Type: 
  Country: None (occurrence: None)
  Receive Date: 20100524
  Receipt Date: 20100524
  Transmission Date: 20101027
  Serious: Yes (Hospitalization)
  Sender: FDA-Public Use
  Company Number: None

PATIENT
  Age: 62 Year
  Sex: Female
  Weight: 86 kg

DRUGS (3)
  1. BEVACIZUMAB [Suspect]
     Indication: BREAST CANCER
     Dosage: 96.4 MG EVERY OTHER WK IV
     Route: 042
     Dates: start: 20100203, end: 20100505
  2. ABRAXANE [Suspect]
     Indication: BREAST CANCER
     Dosage: 148 MG WEEKLY IV
     Route: 042
     Dates: start: 20100216, end: 20100505
  3. CARBOPLATIN [Suspect]
     Indication: BREAST CANCER
     Dosage: 930 MG WKS 1,4,7,10 IV
     Route: 042
     Dates: start: 20100216, end: 20100428

REACTIONS (8)
  - BODY TEMPERATURE INCREASED [None]
  - CELLULITIS [None]
  - CHILLS [None]
  - EPISTAXIS [None]
  - HAEMOGLOBIN DECREASED [None]
  - MUSCULOSKELETAL PAIN [None]
  - NEUTROPHIL COUNT DECREASED [None]
  - PLATELET COUNT DECREASED [None]
